FAERS Safety Report 23261027 (Version 2)
Quarter: 2024Q1

REPORT INFORMATION
  Report Type: Spontaneous
  Country: US (occurrence: None)
  Receive Date: 20231205
  Receipt Date: 20240110
  Transmission Date: 20240410
  Serious: Yes (Other)
  Sender: FDA-Public Use
  Company Number: US-Axsome Therapeutics, Inc.-AXS202311-001511

PATIENT
  Age: 32 Year
  Sex: Male

DRUGS (3)
  1. AUVELITY [Suspect]
     Active Substance: BUPROPION HYDROCHLORIDE\DEXTROMETHORPHAN HYDROBROMIDE
     Indication: Major depression
     Route: 065
     Dates: start: 20231107, end: 20231113
  2. AUVELITY [Suspect]
     Active Substance: BUPROPION HYDROCHLORIDE\DEXTROMETHORPHAN HYDROBROMIDE
     Route: 065
     Dates: start: 20231114, end: 2023
  3. MORPHINE [Concomitant]
     Active Substance: MORPHINE
     Indication: Pain
     Dosage: UNK
     Route: 062

REACTIONS (5)
  - Loss of consciousness [Recovered/Resolved]
  - Alcohol intolerance [Recovered/Resolved]
  - Labelled drug-food interaction issue [Recovered/Resolved]
  - Therapy partial responder [Unknown]
  - Off label use [Unknown]

NARRATIVE: CASE EVENT DATE: 20230101
